FAERS Safety Report 6286000-8 (Version None)
Quarter: 2009Q3

REPORT INFORMATION
  Report Type: 
  Country: None (occurrence: None)
  Receive Date: 20090728
  Receipt Date: 20090722
  Transmission Date: 20100115
  Serious: Yes (Hospitalization, Other)
  Sender: FDA-Public Use
  Company Number: BR-BAYER-BR-2006-030365

PATIENT
  Age: 22 Year
  Sex: Female

DRUGS (8)
  1. BETAFERON [Suspect]
     Indication: MULTIPLE SCLEROSIS
     Route: 058
     Dates: start: 20030101, end: 20041001
  2. BETAFERON [Suspect]
     Route: 058
     Dates: start: 20050601, end: 20050101
  3. BETAFERON [Suspect]
     Route: 058
     Dates: start: 20060201, end: 20070101
  4. BETAFERON [Suspect]
     Route: 058
     Dates: start: 20050801, end: 20051201
  5. MENOREM [Concomitant]
     Indication: DRUG USE FOR UNKNOWN INDICATION
     Route: 042
     Dates: start: 20060101, end: 20060101
  6. TARGOCID [Concomitant]
     Indication: URINARY TRACT INFECTION
     Route: 042
  7. POLYMYCIN B SULFATE [Concomitant]
     Indication: DRUG USE FOR UNKNOWN INDICATION
     Route: 042
  8. TYGACIL [Concomitant]
     Indication: ANTIBIOTIC THERAPY

REACTIONS (9)
  - ABASIA [None]
  - APHASIA [None]
  - COMA [None]
  - DRUG EXPOSURE DURING PREGNANCY [None]
  - MULTIPLE SCLEROSIS [None]
  - MULTIPLE SCLEROSIS RELAPSE [None]
  - NEUROGENIC BLADDER [None]
  - URINARY TRACT INFECTION [None]
  - WEIGHT DECREASED [None]
